FAERS Safety Report 7775440-3 (Version None)
Quarter: 2011Q3

REPORT INFORMATION
  Report Type: 
  Country: None (occurrence: None)
  Receive Date: 20110923
  Receipt Date: 20110920
  Transmission Date: 20111222
  Serious: Yes (Other)
  Sender: FDA-Public Use
  Company Number: PHHY2011FR83987

PATIENT
  Age: 67 Year
  Sex: Female

DRUGS (3)
  1. SANDOSTATIN LAR [Suspect]
     Dosage: 30 MG, UNK
     Route: 065
     Dates: start: 20110501
  2. AFINITOR [Suspect]
     Dosage: 10 MG, UNK
     Dates: start: 20110701, end: 20110801
  3. AFINITOR [Suspect]
     Dosage: 5 MG, UNK
     Dates: start: 20110901

REACTIONS (2)
  - PURPURA [None]
  - THROMBOCYTOPENIA [None]
